FAERS Safety Report 8502452-4 (Version None)
Quarter: 2012Q3

REPORT INFORMATION
  Report Type: 
  Country: None (occurrence: None)
  Receive Date: 20120711
  Receipt Date: 20120703
  Transmission Date: 20120928
  Serious: Yes (Other)
  Sender: FDA-Public Use
  Company Number: FR-SANOFI-AVENTIS-2012SA047089

PATIENT
  Age: 81 Year
  Sex: Male
  Weight: 88 kg

DRUGS (11)
  1. NORVIR [Concomitant]
     Route: 065
  2. RAMIPRIL [Concomitant]
     Route: 065
  3. VITAMIN B-12 [Concomitant]
     Dosage: 1000 GAMMA DOSE:1000 UNIT(S)
     Route: 048
  4. LASIX [Suspect]
     Route: 048
  5. ISOPTIN [Concomitant]
     Route: 065
  6. EPIVIR [Concomitant]
     Route: 065
  7. ASPIRIN [Concomitant]
     Route: 065
  8. FLUVASTATIN SODIUM [Concomitant]
     Dosage: 10
     Route: 065
  9. CYSTINE/PYRIDOXINE HYDROCHLORIDE [Concomitant]
     Route: 048
  10. ATAZANAVIR [Suspect]
     Indication: HIV INFECTION
     Route: 048
     Dates: start: 20060815, end: 20120620
  11. ARANESP [Concomitant]
     Dosage: 50 GAMMA EVERY 15 DAYS DOSE:50 UNIT(S)
     Route: 065

REACTIONS (1)
  - NEPHROLITHIASIS [None]
